FAERS Safety Report 16057109 (Version 1)
Quarter: 2019Q1

REPORT INFORMATION
  Report Type: Spontaneous
  Country: US (occurrence: US)
  Receive Date: 20190311
  Receipt Date: 20190311
  Transmission Date: 20190418
  Serious: Yes (Hospitalization, Disabling)
  Sender: FDA-Public Use
  Company Number: US-JNJFOC-20190308980

PATIENT
  Age: 47 Year
  Sex: Male
  Weight: 119.54 kg

DRUGS (1)
  1. INVOKANA [Suspect]
     Active Substance: CANAGLIFLOZIN
     Indication: PRODUCT USED FOR UNKNOWN INDICATION
     Route: 048

REACTIONS (4)
  - Osteonecrosis [Unknown]
  - Osteomyelitis chronic [Unknown]
  - Diabetic foot infection [Recovered/Resolved]
  - Limb amputation [Unknown]

NARRATIVE: CASE EVENT DATE: 201701
